FAERS Safety Report 23181701 (Version 1)
Quarter: 2023Q4

REPORT INFORMATION
  Report Type: Spontaneous
  Country: FR (occurrence: None)
  Receive Date: 20231114
  Receipt Date: 20231114
  Transmission Date: 20240109
  Serious: Yes (Hospitalization)
  Sender: FDA-Public Use
  Company Number: 2023A255056

PATIENT
  Age: 74 Year
  Sex: Female
  Weight: 107.5 kg

DRUGS (1)
  1. DAPAGLIFLOZIN [Suspect]
     Active Substance: DAPAGLIFLOZIN
     Indication: Type 2 diabetes mellitus
     Dosage: 10MG
     Route: 048
     Dates: start: 20231021, end: 20231025

REACTIONS (1)
  - Capillary leak syndrome [Not Recovered/Not Resolved]

NARRATIVE: CASE EVENT DATE: 20231025
